FAERS Safety Report 7640698-8 (Version None)
Quarter: 2011Q3

REPORT INFORMATION
  Report Type: 
  Country: None (occurrence: None)
  Receive Date: 20110728
  Receipt Date: 20110721
  Transmission Date: 20111222
  Serious: Yes (Hospitalization)
  Sender: FDA-Public Use
  Company Number: US-BAYER-201038476NA

PATIENT
  Age: 18 Year
  Sex: Female
  Weight: 72.562 kg

DRUGS (10)
  1. METRONIDAZOLE [Concomitant]
     Dosage: UNK
     Dates: start: 20070502
  2. IMITREX [Concomitant]
     Indication: MIGRAINE
     Dosage: UNK
     Dates: start: 20040101, end: 20050101
  3. DROSPIRENONE AND ETHINYL ESTRADIOL [Suspect]
     Indication: ACNE
  4. HYDROCODONE BITARTRATE AND ACETAMINOPHEN [Concomitant]
     Dosage: UNK
     Dates: start: 20070723
  5. YASMIN [Suspect]
     Indication: ACNE
     Dosage: UNK
     Dates: start: 20050101, end: 20070101
  6. TETRACYCLINE [Concomitant]
     Dosage: UNK
     Dates: start: 20070502
  7. PROTONIX [Concomitant]
     Indication: MIGRAINE
     Dosage: UNK
     Dates: start: 20070523
  8. ALBUTEROL SULFATE AUTOHALER [Concomitant]
     Dosage: UNK
     Dates: start: 20060101
  9. NAPROXEN [Concomitant]
     Dosage: UNK
     Dates: start: 20050101, end: 20070101
  10. YAZ [Suspect]
     Indication: ACNE
     Dosage: UNK
     Dates: start: 20050827, end: 20070701

REACTIONS (12)
  - ENDOMETRIOSIS [None]
  - GALLBLADDER NON-FUNCTIONING [None]
  - OVARIAN CYST [None]
  - VOMITING [None]
  - OVARIAN DISORDER [None]
  - NAUSEA [None]
  - PAIN [None]
  - ABDOMINAL PAIN UPPER [None]
  - ABDOMINAL ADHESIONS [None]
  - CHOLECYSTITIS CHRONIC [None]
  - POLYMENORRHOEA [None]
  - ABDOMINAL DISTENSION [None]
